FAERS Safety Report 8890934 (Version 2)
Quarter: 2012Q4

REPORT INFORMATION
  Report Type: Report from Study
  Country: US (occurrence: US)
  Receive Date: 20121107
  Receipt Date: 20121205
  Transmission Date: 20130627
  Serious: Yes (Hospitalization, Other)
  Sender: FDA-Public Use
  Company Number: US-ROCHE-1153255

PATIENT
  Age: 85 Year
  Sex: Female

DRUGS (5)
  1. RANIBIZUMAB [Suspect]
     Indication: AGE-RELATED MACULAR DEGENERATION
     Route: 050
     Dates: start: 20121011, end: 20121011
  2. ASPIRIN [Concomitant]
     Route: 048
  3. METOPROLOL [Concomitant]
     Route: 048
  4. ICAPS [Concomitant]
     Indication: AGE-RELATED MACULAR DEGENERATION
     Route: 048
  5. MULTIVITAMIN [Concomitant]
     Route: 048

REACTIONS (1)
  - Cerebrovascular accident [Recovering/Resolving]
